FAERS Safety Report 9801109 (Version 1)
Quarter: 2014Q1

REPORT INFORMATION
  Report Type: Spontaneous
  Country: US (occurrence: US)
  Receive Date: 20140107
  Receipt Date: 20140107
  Transmission Date: 20141002
  Serious: Yes (Other)
  Sender: FDA-Public Use
  Company Number: US-SA-2014SA001574

PATIENT
  Sex: Female

DRUGS (8)
  1. PLAVIX [Suspect]
     Indication: MYOCARDIAL INFARCTION
     Route: 048
     Dates: start: 201308
  2. ASPIRIN [Suspect]
     Indication: MYOCARDIAL INFARCTION
     Route: 048
     Dates: start: 201308
  3. XARELTO [Suspect]
     Indication: ATRIAL FIBRILLATION
     Route: 048
     Dates: start: 201308
  4. XARELTO [Suspect]
     Indication: CEREBROVASCULAR ACCIDENT PROPHYLAXIS
     Route: 048
     Dates: start: 201308
  5. METOPROLOL [Suspect]
     Indication: ATRIAL FIBRILLATION
     Route: 065
     Dates: start: 201308
  6. METOPROLOL [Suspect]
     Indication: MYOCARDIAL INFARCTION
     Route: 065
     Dates: start: 201308
  7. ANTIBIOTICS [Suspect]
     Indication: LOCALISED INFECTION
     Route: 065
  8. FISH OIL [Concomitant]
     Route: 065

REACTIONS (4)
  - Localised infection [Unknown]
  - Vaginal haemorrhage [Not Recovered/Not Resolved]
  - Memory impairment [Unknown]
  - Asthenia [Unknown]
